FAERS Safety Report 18092247 (Version 1)
Quarter: 2020Q3

REPORT INFORMATION
  Report Type: Spontaneous
  Country: US (occurrence: US)
  Receive Date: 20200730
  Receipt Date: 20200730
  Transmission Date: 20201103
  Serious: Yes (Other)
  Sender: FDA-Public Use
  Company Number: None

PATIENT
  Age: 32 Year
  Sex: Male
  Weight: 81 kg

DRUGS (2)
  1. DESVENLAFAXINE. [Concomitant]
     Active Substance: DESVENLAFAXINE
  2. GABAPENTIN. [Suspect]
     Active Substance: GABAPENTIN
     Indication: INTERVERTEBRAL DISC PROTRUSION

REACTIONS (9)
  - Confusional state [None]
  - Disorientation [None]
  - Depression [None]
  - Drug withdrawal syndrome [None]
  - Hypoaesthesia [None]
  - Chest pain [None]
  - Paraesthesia [None]
  - Panic attack [None]
  - Disturbance in attention [None]

NARRATIVE: CASE EVENT DATE: 20200701
